FAERS Safety Report 9563945 (Version 1)
Quarter: 2013Q3

REPORT INFORMATION
  Report Type: Spontaneous
  Country: FI (occurrence: FI)
  Receive Date: 20130928
  Receipt Date: 20130928
  Transmission Date: 20140515
  Serious: Yes (Hospitalization)
  Sender: FDA-Public Use
  Company Number: FI-BAYER-2013-114074

PATIENT
  Age: 31 Year
  Sex: Female

DRUGS (2)
  1. MIRENA [Suspect]
     Indication: CONTRACEPTION
     Dosage: 20 ?G, CONT
     Route: 015
     Dates: start: 20110803, end: 20130709
  2. MIRENA [Suspect]
     Indication: MENORRHAGIA

REACTIONS (8)
  - Blindness unilateral [Not Recovered/Not Resolved]
  - Optic neuritis [None]
  - Eye pain [None]
  - Headache [None]
  - Swelling face [None]
  - Myokymia [None]
  - Head discomfort [None]
  - Vision blurred [None]
